FAERS Safety Report 11533324 (Version 1)
Quarter: 2015Q3

REPORT INFORMATION
  Report Type: Spontaneous
  Country: US (occurrence: US)
  Receive Date: 20150921
  Receipt Date: 20150921
  Transmission Date: 20151125
  Serious: No
  Sender: FDA-Public Use
  Company Number: US-ALLERGAN-1423148US

PATIENT
  Sex: Female
  Weight: 56.69 kg

DRUGS (1)
  1. LASTACAFT [Suspect]
     Active Substance: ALCAFTADINE
     Indication: CONJUNCTIVITIS ALLERGIC
     Dosage: 2 GTT, QD
     Route: 047
     Dates: start: 20140801

REACTIONS (3)
  - Erythema of eyelid [Recovering/Resolving]
  - Conjunctival oedema [Recovering/Resolving]
  - Ocular hyperaemia [Recovering/Resolving]
